FAERS Safety Report 6178249-X (Version None)
Quarter: 2009Q2

REPORT INFORMATION
  Report Type: 
  Country: None (occurrence: None)
  Receive Date: 20090504
  Receipt Date: 20090424
  Transmission Date: 20091009
  Serious: Yes (Hospitalization)
  Sender: FDA-Public Use
  Company Number: A0780655A

PATIENT
  Age: 55 Year
  Sex: Male
  Weight: 118.2 kg

DRUGS (8)
  1. AVANDIA [Suspect]
     Indication: DIABETES MELLITUS
     Route: 048
     Dates: start: 20010901
  2. STARLIX [Concomitant]
     Dates: start: 20010901, end: 20021101
  3. GLARGINE [Concomitant]
     Dates: start: 20000101
  4. AMARYL [Concomitant]
     Dates: start: 20010901, end: 20021101
  5. UNIVASC [Concomitant]
  6. VYTORIN [Concomitant]
  7. OMACOR [Concomitant]
  8. GLUCOVANCE [Concomitant]

REACTIONS (2)
  - CEREBROVASCULAR ACCIDENT [None]
  - HYPERTENSION [None]
